FAERS Safety Report 16510697 (Version 1)
Quarter: 2019Q3

REPORT INFORMATION
  Report Type: Spontaneous
  Country: BR (occurrence: BR)
  Receive Date: 20190702
  Receipt Date: 20190702
  Transmission Date: 20191004
  Serious: Yes (Other)
  Sender: FDA-Public Use
  Company Number: BR-TORRENT-00005031

PATIENT
  Age: 43 Year
  Sex: Male
  Weight: 92 kg

DRUGS (15)
  1. ESPRAN [Suspect]
     Active Substance: ESCITALOPRAM OXALATE
     Indication: DEPRESSION
     Dosage: UNKNOWN
     Route: 048
     Dates: start: 201901
  2. ARIPIPRAZOLE. [Concomitant]
     Active Substance: ARIPIPRAZOLE
     Indication: DISTURBANCE IN ATTENTION
     Dosage: ONE TABLET OF 10 MG IN THE MORNING
     Dates: start: 201901
  3. HIDRION [Concomitant]
     Active Substance: FUROSEMIDE\POTASSIUM CHLORIDE
     Indication: FLUID RETENTION
     Dosage: 1 TABLET DAILY
     Dates: start: 2017
  4. VITAMIN C [Concomitant]
     Active Substance: ASCORBIC ACID
     Indication: VITAMIN SUPPLEMENTATION
     Dosage: UNKNOWN
     Dates: start: 2009
  5. FLAVENOS [Concomitant]
     Indication: BLOOD DISORDER
     Dosage: 2 TABLETS IN THE MORNING
     Dates: start: 1999
  6. ADDERA D3 [Concomitant]
     Active Substance: CHOLECALCIFEROL
     Indication: VITAMIN SUPPLEMENTATION
     Dosage: ONE CAPSULE EVERY MONDAY, WEDNESDAY AND FRIDAY
     Dates: start: 201901
  7. DECAN HALOPER [Concomitant]
     Indication: ANXIETY
     Dosage: 1 AMPOULE MONTHLY
     Dates: start: 1999
  8. ZINPASS [Concomitant]
     Indication: BLOOD CHOLESTEROL
     Dosage: 2 TABLETS
  9. CRONOBE [Concomitant]
     Active Substance: COBAMAMIDE
     Indication: MEMORY IMPAIRMENT
     Dosage: UNKNOWN
  10. GARLIC OIL [Concomitant]
     Active Substance: GARLIC OIL
     Indication: PRODUCT USED FOR UNKNOWN INDICATION
     Dosage: 700 MG 1 OR 2 CAPSULES DAILY
  11. MAGNESIUM [Concomitant]
     Active Substance: MAGNESIUM
     Indication: PRODUCT USED FOR UNKNOWN INDICATION
     Dosage: ONE TABLET EVERY MONDAY, WEDNESDAY, SATURDAY AND SUNDAY
     Dates: start: 201901
  12. XENICAL [Concomitant]
     Active Substance: ORLISTAT
     Indication: OBESITY
     Dosage: UNKNOWN
     Dates: start: 1994
  13. NORIPURUM [Concomitant]
     Active Substance: IRON POLYMALTOSE
     Indication: IRON DEFICIENCY
     Dosage: 1 AMPOULE OF 100 MG/2ML
     Route: 030
     Dates: start: 201901
  14. OMEGA 3 [Concomitant]
     Active Substance: OMEGA-3 FATTY ACIDS
     Indication: PRODUCT USED FOR UNKNOWN INDICATION
     Dosage: ONE TABLET DAILY, 500/400 MG
  15. CHLORTHALIDONE. [Concomitant]
     Active Substance: CHLORTHALIDONE
     Indication: BLOOD PRESSURE MEASUREMENT
     Dosage: 1 TABLET DAILY
     Dates: start: 2017

REACTIONS (4)
  - Gynaecomastia [Recovering/Resolving]
  - Tremor [Recovering/Resolving]
  - Nodule [Recovering/Resolving]
  - Swelling [Recovering/Resolving]

NARRATIVE: CASE EVENT DATE: 201901
